FAERS Safety Report 19705728 (Version 4)
Quarter: 2022Q1

REPORT INFORMATION
  Report Type: Other
  Country: US (occurrence: None)
  Receive Date: 20210817
  Receipt Date: 20220103
  Transmission Date: 20220424
  Serious: Yes (Death, Hospitalization)
  Sender: FDA-Public Use
  Company Number: US-ROCHE-2889313

PATIENT
  Sex: Male

DRUGS (4)
  1. ESBRIET [Suspect]
     Active Substance: PIRFENIDONE
     Indication: Idiopathic pulmonary fibrosis
     Dosage: TAKE 1 TABLET BY MOUTH 3 TIMES A DAY
     Route: 048
  2. ESBRIET [Suspect]
     Active Substance: PIRFENIDONE
     Indication: Lung neoplasm malignant
     Dosage: TAKE 3 TABLET(S) BY MOUTH 3 TIMES A DAY
     Route: 048
  3. CARBOPLATIN [Concomitant]
     Active Substance: CARBOPLATIN
  4. ETOPOSIDE [Concomitant]
     Active Substance: ETOPOSIDE

REACTIONS (3)
  - Death [Fatal]
  - Pneumonia [Unknown]
  - Off label use [Unknown]
